FAERS Safety Report 15755056 (Version 1)
Quarter: 2018Q4

REPORT INFORMATION
  Report Type: Spontaneous
  Country: CA (occurrence: CA)
  Receive Date: 20181224
  Receipt Date: 20181224
  Transmission Date: 20190205
  Serious: Yes (Death, Other)
  Sender: FDA-Public Use
  Company Number: CA-TEVA-2018-CA-990724

PATIENT
  Age: 55 Year
  Sex: Female

DRUGS (4)
  1. PREDNISONE. [Suspect]
     Active Substance: PREDNISONE
     Indication: STEM CELL TRANSPLANT
     Route: 065
  2. PREDNISONE. [Suspect]
     Active Substance: PREDNISONE
     Indication: IMMUNOSUPPRESSANT DRUG THERAPY
  3. MYCOPHENOLIC ACID. [Suspect]
     Active Substance: MYCOPHENOLIC ACID
     Indication: IMMUNOSUPPRESSANT DRUG THERAPY
  4. MYCOPHENOLIC ACID. [Suspect]
     Active Substance: MYCOPHENOLIC ACID
     Indication: STEM CELL TRANSPLANT
     Route: 065

REACTIONS (8)
  - Cytomegalovirus infection [Fatal]
  - Graft versus host disease in gastrointestinal tract [Fatal]
  - Graft versus host disease in skin [Fatal]
  - Nocardiosis [Fatal]
  - Mycobacterium avium complex infection [Fatal]
  - Cytomegalovirus viraemia [Fatal]
  - Escherichia infection [Fatal]
  - Product use in unapproved indication [Fatal]
